FAERS Safety Report 5182835-3 (Version None)
Quarter: 2006Q4

REPORT INFORMATION
  Report Type: 
  Country: None (occurrence: None)
  Receive Date: 20061220
  Receipt Date: 20051121
  Transmission Date: 20070319
  Serious: No
  Sender: FDA-Public Use
  Company Number: US-GLAXOSMITHKLINE-A0583028A

PATIENT
  Age: 50 Year
  Sex: Female

DRUGS (1)
  1. EQUATE NTS 14MG [Suspect]
     Indication: SMOKING CESSATION THERAPY
     Dates: start: 20051121

REACTIONS (4)
  - APPLICATION SITE IRRITATION [None]
  - APPLICATION SITE PARAESTHESIA [None]
  - HYPOAESTHESIA [None]
  - PARAESTHESIA [None]
